FAERS Safety Report 4436788-3 (Version None)
Quarter: 2004Q3

REPORT INFORMATION
  Report Type: 
  Country: None (occurrence: None)
  Receive Date: 20040830
  Receipt Date: 20040819
  Transmission Date: 20050211
  Serious: Yes (Hospitalization)
  Sender: FDA-Public Use
  Company Number: US-JNJFOC-20040807143

PATIENT
  Sex: Male

DRUGS (1)
  1. VIADUR [Suspect]
     Route: 058

REACTIONS (2)
  - APPLICATION SITE INFECTION [None]
  - IMPLANT SITE INFECTION [None]
